FAERS Safety Report 10812329 (Version 1)
Quarter: 2015Q1

REPORT INFORMATION
  Report Type: Spontaneous
  Country: US (occurrence: US)
  Receive Date: 20150218
  Receipt Date: 20150218
  Transmission Date: 20150721
  Serious: Yes (Other)
  Sender: FDA-Public Use
  Company Number: US-JNJFOC-20150211714

PATIENT

DRUGS (3)
  1. DOXORUBICIN HYDROCHLORIDE. [Suspect]
     Active Substance: DOXORUBICIN HYDROCHLORIDE
     Indication: NEUROBLASTOMA
     Dosage: 60-75 MG/M2
     Route: 042
     Dates: start: 2009, end: 2011
  2. DEXRAZOXANE. [Suspect]
     Active Substance: DEXRAZOXANE
     Indication: NEUROBLASTOMA
     Dosage: 200?250 MG/M2
     Route: 042
     Dates: start: 2009, end: 2011
  3. OXALIPLATIN. [Suspect]
     Active Substance: OXALIPLATIN
     Indication: NEUROBLASTOMA
     Dosage: 105-130 MG/M2
     Route: 065
     Dates: start: 2009, end: 2011

REACTIONS (5)
  - Thrombocytopenia [Unknown]
  - Enterocolitis [Unknown]
  - Neutropenia [Unknown]
  - Febrile neutropenia [Unknown]
  - Product use issue [Unknown]
